FAERS Safety Report 16135165 (Version 1)
Quarter: 2019Q1

REPORT INFORMATION
  Report Type: Report from Study
  Country: US (occurrence: US)
  Receive Date: 20190329
  Receipt Date: 20190329
  Transmission Date: 20190418
  Serious: Yes (Other)
  Sender: FDA-Public Use
  Company Number: US-BAUSCH-BL-2019-009546

PATIENT
  Age: 57 Year
  Sex: Male

DRUGS (1)
  1. SILIQ [Suspect]
     Active Substance: BRODALUMAB
     Indication: PRODUCT USED FOR UNKNOWN INDICATION
     Dosage: 210 MG/1.5 ML; WEEKS 0,1 AND 2 AS DIRECTED
     Route: 058

REACTIONS (2)
  - Hand fracture [Unknown]
  - Fall [Unknown]

NARRATIVE: CASE EVENT DATE: 20190202
